FAERS Safety Report 4553790-1 (Version None)
Quarter: 2005Q1

REPORT INFORMATION
  Report Type: 
  Country: None (occurrence: None)
  Receive Date: 20050112
  Receipt Date: 20050112
  Transmission Date: 20050727
  Serious: Yes (Death)
  Sender: FDA-Public Use
  Company Number: None

PATIENT
  Sex: Male
  Weight: 16 kg

DRUGS (1)
  1. DEXAMETHASONE [Suspect]
     Indication: ACUTE LYMPHOCYTIC LEUKAEMIA
     Dosage: 2.2 MG O BD (FOR DEXA)

REACTIONS (6)
  - BLOOD CULTURE POSITIVE [None]
  - DIARRHOEA [None]
  - FEBRILE NEUTROPENIA [None]
  - FUNGAL TEST POSITIVE [None]
  - HYPOTENSION [None]
  - PNEUMONIA [None]
